FAERS Safety Report 7487776-4 (Version None)
Quarter: 2011Q2

REPORT INFORMATION
  Report Type: 
  Country: None (occurrence: None)
  Receive Date: 20110518
  Receipt Date: 20110504
  Transmission Date: 20111010
  Serious: Yes (Hospitalization, Other)
  Sender: FDA-Public Use
  Company Number: PHHY2011US25392

PATIENT
  Sex: Female

DRUGS (2)
  1. EXJADE [Suspect]
     Dosage: 500 MG, QD
     Route: 048
  2. PEPCID [Concomitant]

REACTIONS (8)
  - DYSPEPSIA [None]
  - ABDOMINAL DISCOMFORT [None]
  - CYSTITIS [None]
  - POST PROCEDURAL COMPLICATION [None]
  - URINARY TRACT INFECTION [None]
  - SICKLE CELL ANAEMIA WITH CRISIS [None]
  - JAUNDICE [None]
  - POST PROCEDURAL DISCHARGE [None]
